FAERS Safety Report 13431167 (Version 1)
Quarter: 2017Q2

REPORT INFORMATION
  Report Type: Spontaneous
  Country: CA (occurrence: CA)
  Receive Date: 20170412
  Receipt Date: 20170412
  Transmission Date: 20170830
  Serious: Yes (Life-Threatening, Disabling, Other)
  Sender: FDA-Public Use
  Company Number: None

PATIENT
  Age: 62 Year
  Sex: Female
  Weight: 101.61 kg

DRUGS (2)
  1. OMEGA-3 LIQUID 700 MG EPA/DHA PLUS VITAMIN A + 1000 IU VITAMIN D - WEBBERS NATURALS [Concomitant]
  2. APO-INDAPAMIDE [Suspect]
     Active Substance: INDAPAMIDE
     Indication: HYPERTENSION
     Dosage: 1 PILL DAILY 90 TABLETS 1 PILL DAILY ORAL TABLET - SWALLOWED
     Route: 048
     Dates: start: 20170301, end: 20170314

REACTIONS (6)
  - Dehydration [None]
  - Asthenia [None]
  - Dysphagia [None]
  - Laryngospasm [None]
  - Nausea [None]
  - Muscle spasms [None]

NARRATIVE: CASE EVENT DATE: 20170309
